FAERS Safety Report 21018684 (Version 1)
Quarter: 2022Q2

REPORT INFORMATION
  Report Type: Spontaneous
  Country: US (occurrence: None)
  Receive Date: 20220628
  Receipt Date: 20220628
  Transmission Date: 20220721
  Serious: No
  Sender: FDA-Public Use
  Company Number: None

PATIENT
  Sex: Female

DRUGS (1)
  1. VELETRI (EPOPROSTENOL SODIUM) [Suspect]
     Active Substance: EPOPROSTENOL SODIUM
     Indication: Pulmonary arterial hypertension
     Dosage: OTHER STRENGTH : 8NG/KG/MIN;?OTHER QUANTITY : 8NG/KG/MIN;?OTHER FREQUENCY : CONTINUOUS;?
     Route: 041
     Dates: start: 20220624

REACTIONS (7)
  - Rash pruritic [None]
  - Rash [None]
  - Paraesthesia [None]
  - Burning sensation [None]
  - Blister [None]
  - Self-medication [None]
  - Pain [None]
